FAERS Safety Report 4954412-8 (Version None)
Quarter: 2006Q1

REPORT INFORMATION
  Report Type: 
  Country: None (occurrence: None)
  Receive Date: 20060327
  Receipt Date: 20060316
  Transmission Date: 20060701
  Serious: Yes (Hospitalization)
  Sender: FDA-Public Use
  Company Number: US-ROCHE-440954

PATIENT
  Age: 78 Year
  Sex: Female

DRUGS (2)
  1. BONIVA [Suspect]
     Indication: OSTEOPOROSIS
     Dosage: DOSAGE: 150MG EVERY MONTH.
     Route: 048
     Dates: start: 20060217, end: 20060217
  2. BLOOD PRESSURE MEDICATION NOS [Concomitant]
     Indication: HYPERTENSION

REACTIONS (3)
  - CHEST PAIN [None]
  - DIABETES MELLITUS NON-INSULIN-DEPENDENT [None]
  - PANCREATITIS ACUTE [None]
